FAERS Safety Report 20974686 (Version 1)
Quarter: 2022Q2

REPORT INFORMATION
  Report Type: Report from Study
  Country: EG (occurrence: EG)
  Receive Date: 20220617
  Receipt Date: 20220617
  Transmission Date: 20220721
  Serious: Yes (Other)
  Sender: FDA-Public Use
  Company Number: EG-NOVARTISPH-NVSC2022EG133413

PATIENT
  Age: 68 Year
  Sex: Female

DRUGS (10)
  1. KISQALI [Suspect]
     Active Substance: RIBOCICLIB
     Indication: Breast cancer metastatic
     Dosage: 200 MG, TID (3 TABLET PER DAY FOR 3 WEEKS THEN ONE WEEK OFF)
     Route: 048
     Dates: start: 20211224
  2. KISQALI [Suspect]
     Active Substance: RIBOCICLIB
     Dosage: 200 MG, BID (2 TABLETS PER DAY FOR 3 WEEKS THEN 1 WEEK OFF)
     Route: 048
     Dates: start: 202202
  3. INSULIN NOS [Concomitant]
     Active Substance: INSULIN NOS
     Indication: Diabetes mellitus
     Dosage: UNK (20/40, DOSE ACCORDING TO BLOOD SUGAR LEVEL)
     Route: 065
     Dates: start: 20220102
  4. CALCIUM [Concomitant]
     Active Substance: CALCIUM
     Indication: Bone disorder
     Dosage: 1 DOSAGE FORM, QD (AFTER LUNCH)
     Route: 065
  5. VITAMIN D [Concomitant]
     Active Substance: VITAMIN D NOS
     Indication: Vitamin supplementation
     Dosage: UNK (ONE MEDICATION FROM 4 YERS)
     Route: 065
     Dates: start: 202202
  6. BENFOTIAMINE\CYANOCOBALAMIN\PYRIDOXINE HYDROCHLORIDE [Concomitant]
     Active Substance: BENFOTIAMINE\CYANOCOBALAMIN\PYRIDOXINE HYDROCHLORIDE
     Indication: Vitamin supplementation
     Dosage: UNK
     Route: 065
  7. SODIUM [Concomitant]
     Active Substance: SODIUM
     Indication: Renal disorder
     Dosage: 1 DOSAGE FORM, QD
     Route: 065
     Dates: start: 202202
  8. ZANTAC [Concomitant]
     Active Substance: RANITIDINE HYDROCHLORIDE
     Indication: Prophylaxis
     Dosage: UNK
     Route: 065
  9. ZOMETA [Concomitant]
     Active Substance: ZOLEDRONIC ACID
     Indication: Bone disorder
     Dosage: UNK UNK, Q3MO
     Route: 065
     Dates: start: 202009, end: 202111
  10. FASLODEX [Concomitant]
     Active Substance: FULVESTRANT
     Indication: Product used for unknown indication
     Dosage: 2 DOSAGE FORM, QMO
     Route: 065
     Dates: start: 202009, end: 202111

REACTIONS (7)
  - Blood glucose increased [Recovered/Resolved]
  - Renal impairment [Recovering/Resolving]
  - Decreased immune responsiveness [Recovering/Resolving]
  - Malnutrition [Recovered/Resolved]
  - Hepatic enzyme increased [Recovering/Resolving]
  - Blood creatinine increased [Recovering/Resolving]
  - Haemoglobin decreased [Recovered/Resolved]

NARRATIVE: CASE EVENT DATE: 20220101
